FAERS Safety Report 10913838 (Version 3)
Quarter: 2015Q3

REPORT INFORMATION
  Report Type: Spontaneous
  Country: US (occurrence: US)
  Receive Date: 20150313
  Receipt Date: 20150701
  Transmission Date: 20151125
  Serious: Yes (Hospitalization, Other)
  Sender: FDA-Public Use
  Company Number: US-PFIZER INC-2015031683

PATIENT
  Age: 64 Year
  Sex: Female
  Weight: 126 kg

DRUGS (61)
  1. HUMULIN R [Concomitant]
     Active Substance: INSULIN HUMAN
     Dosage: UNK
     Dates: start: 20140812
  2. ACETAMINOPHEN. [Concomitant]
     Active Substance: ACETAMINOPHEN
     Indication: PAIN
     Dosage: 650 MG, AS NEEDED (Q4H)
     Route: 054
     Dates: start: 20150115, end: 20150226
  3. METOPROLOL TARTRATE. [Concomitant]
     Active Substance: METOPROLOL TARTRATE
     Dosage: 50 MG, 2X/DAY
     Route: 048
     Dates: start: 20150115, end: 20150226
  4. EFFEXOR XR [Concomitant]
     Active Substance: VENLAFAXINE HYDROCHLORIDE
     Dosage: 150 MG, 2X/DAY
     Route: 048
     Dates: start: 20140812
  5. ALBUTEROL. [Concomitant]
     Active Substance: ALBUTEROL
     Dosage: 0.083 %, AS NEEDED (INH, Q6H, PRN)
     Route: 055
  6. CLOPIDOGREL BISULFATE. [Concomitant]
     Active Substance: CLOPIDOGREL BISULFATE
     Dosage: 75 MG, 1X/DAY
     Route: 048
     Dates: start: 20140812
  7. LYRICA [Suspect]
     Active Substance: PREGABALIN
     Dosage: 200 MG, 2X/DAY
     Route: 048
     Dates: start: 20150114
  8. LORAZEPAM. [Concomitant]
     Active Substance: LORAZEPAM
     Dosage: 0.5 MG 2X/DAY, PRN
     Route: 048
     Dates: start: 20150115, end: 20150122
  9. EFFEXOR XR [Concomitant]
     Active Substance: VENLAFAXINE HYDROCHLORIDE
     Dosage: 75 MG, 2X/DAY
     Route: 048
  10. DIPHENOXYLATE [Concomitant]
     Active Substance: DIPHENOXYLATE
     Dosage: 2.5 MG, 1X/DAY
     Route: 048
     Dates: start: 20140812, end: 20150324
  11. OXYCODONE HYDROCHLORIDE. [Concomitant]
     Active Substance: OXYCODONE HYDROCHLORIDE
     Indication: BACK PAIN
     Dosage: 15 MG, AS NEEDED
     Route: 048
     Dates: start: 20141209
  12. LYRICA [Suspect]
     Active Substance: PREGABALIN
     Dosage: 200 MG, 2X/DAY
     Route: 048
     Dates: start: 20090323, end: 20090621
  13. LYRICA [Suspect]
     Active Substance: PREGABALIN
     Dosage: 150 MG, 2X/DAY
     Route: 048
     Dates: start: 20140812, end: 20140908
  14. DUONEB [Concomitant]
     Active Substance: ALBUTEROL SULFATE\IPRATROPIUM BROMIDE
     Indication: WHEEZING
     Dosage: 3 ML 4X/DAY, PRN
     Dates: start: 20150115, end: 20150226
  15. NOVOLOG [Concomitant]
     Active Substance: INSULIN ASPART
     Dosage: WITH MEALS + BEDTIME
     Route: 058
     Dates: start: 20150115, end: 20150226
  16. ATORVASTATIN [Concomitant]
     Active Substance: ATORVASTATIN
     Dosage: 40 MG, 1X/DAY (AT BEDTIME)
     Dates: start: 20150115, end: 20150226
  17. GLUCOSE [Concomitant]
     Active Substance: DEXTROSE
     Dosage: 4 DF, AS NEEDED
     Route: 048
     Dates: start: 20150115, end: 20150226
  18. METOPROLOL TARTRATE. [Concomitant]
     Active Substance: METOPROLOL TARTRATE
     Dosage: 50 MG, 1X/DAY
     Dates: start: 20140812
  19. OXYCODONE [Concomitant]
     Active Substance: OXYCODONE
     Indication: BACK PAIN
     Dosage: 15 MG, AS NEEDED (3 TAB, Q6H, PRN)
     Route: 048
     Dates: start: 20150115, end: 20150122
  20. COMBIVENT [Concomitant]
     Active Substance: ALBUTEROL SULFATE\IPRATROPIUM BROMIDE
     Dosage: 2 PUFF, INH, QID, PRN
     Route: 055
  21. LIPITOR [Concomitant]
     Active Substance: ATORVASTATIN CALCIUM
     Dosage: 40 MG, 1X/DAY
     Route: 048
  22. BROVANA [Concomitant]
     Active Substance: ARFORMOTEROL TARTRATE
     Dosage: 1 DF, 2X/DAY (15 MCG/2 ML INHALATION SOLUTION)
     Dates: start: 20140908
  23. ZITHROMAX [Concomitant]
     Active Substance: AZITHROMYCIN DIHYDRATE
     Dosage: 250 MG, UNK
     Dates: start: 20140908, end: 20141209
  24. LYRICA [Suspect]
     Active Substance: PREGABALIN
     Dosage: 200 MG, 2X/DAY
     Route: 048
     Dates: start: 20140908
  25. EFFEXOR [Concomitant]
     Active Substance: VENLAFAXINE HYDROCHLORIDE
     Dosage: 75 MG, 2X/DAY
     Route: 048
     Dates: start: 20150115, end: 20150226
  26. ACETAMINOPHEN. [Concomitant]
     Active Substance: ACETAMINOPHEN
     Dosage: 325 MG, 2X/DAY (Q4H, PRN)
     Route: 048
     Dates: start: 20150115, end: 20150226
  27. ASPIRIN. [Concomitant]
     Active Substance: ASPIRIN
     Dosage: 81 MG, UNK
     Route: 048
  28. CLOPIDOGREL [Concomitant]
     Active Substance: CLOPIDOGREL BISULFATE
     Dosage: 75 MG, 1X/DAY
     Route: 048
     Dates: start: 20150115, end: 20150226
  29. FUROSEMIDE. [Concomitant]
     Active Substance: FUROSEMIDE
     Dosage: 40 MG, 1X/DAY
     Route: 048
     Dates: start: 20150115, end: 20150226
  30. LISINOPRIL. [Concomitant]
     Active Substance: LISINOPRIL
     Dosage: 20 MG, 1X/DAY
     Route: 048
     Dates: start: 20140812
  31. LORAZEPAM. [Concomitant]
     Active Substance: LORAZEPAM
     Indication: ANXIETY
     Dosage: 0.5 MG, 2X/DAY
     Route: 048
     Dates: start: 20140812
  32. NYSTATIN. [Concomitant]
     Active Substance: NYSTATIN
     Dosage: 100000 UNIT/GM, 4X/DAY
     Route: 061
     Dates: start: 20150310, end: 20150313
  33. OXYGEN. [Concomitant]
     Active Substance: OXYGEN
     Dosage: 3 L, 1X/DAY (AT NIGHT)
  34. ALBUTEROL SULFATE. [Concomitant]
     Active Substance: ALBUTEROL SULFATE
     Dosage: 0.63MG/3 ML (0.021%) INHALATION SOLUTION AT 1 TREATMENT, AS NEEDED
     Dates: start: 20140812
  35. DOXYCYCLINE HYCLATE. [Concomitant]
     Active Substance: DOXYCYCLINE HYCLATE
     Dosage: 100 MG, 2X/DAY
     Route: 048
     Dates: start: 20150209
  36. POTASSIUM CHLORIDE. [Concomitant]
     Active Substance: POTASSIUM CHLORIDE
     Dosage: 10 MEQ, 2X/DAY
     Route: 048
     Dates: start: 20140812
  37. PRAVASTATIN [Concomitant]
     Active Substance: PRAVASTATIN\PRAVASTATIN SODIUM
     Dosage: 40 MG, 1X/DAY
     Route: 048
     Dates: start: 20140812
  38. KLOR-CON M10 [Concomitant]
     Active Substance: POTASSIUM CHLORIDE
     Dosage: 10 MEQ, 2X/DAY
     Dates: start: 20140812, end: 20150324
  39. ZITHROMAX [Concomitant]
     Active Substance: AZITHROMYCIN DIHYDRATE
     Dosage: 250 MG, UNK
     Dates: start: 20141209, end: 20150518
  40. DEXTROSE. [Concomitant]
     Active Substance: DEXTROSE
     Indication: HYPOGLYCAEMIA
     Dosage: 50 %, AS NEEDED
     Route: 042
     Dates: start: 20150115, end: 20150226
  41. NORMAL SALINE FLUSH [Concomitant]
     Active Substance: SODIUM CHLORIDE
     Dosage: 5 ML, AS DIRECTED
     Dates: start: 20150115, end: 20150226
  42. ASPIRIN. [Concomitant]
     Active Substance: ASPIRIN
     Dosage: 325 MG, 1X/DAY
     Route: 048
     Dates: start: 20150116, end: 20150227
  43. GLUCAGON. [Concomitant]
     Active Substance: GLUCAGON
     Indication: HYPOGLYCAEMIA
     Dosage: 1 ML, AS DIRECTED, PRN
     Route: 030
     Dates: start: 20150115, end: 20150226
  44. NYSTATIN. [Concomitant]
     Active Substance: NYSTATIN
     Dosage: 100000 UNIT/ML MOUTH/THROAT SUSPENSION RINSE AND SPIT 5 ML QID PRN
     Dates: start: 20150310, end: 20150324
  45. LYRICA [Suspect]
     Active Substance: PREGABALIN
     Dosage: 150 MG, UNK
     Route: 048
     Dates: start: 20091005, end: 20150114
  46. HUMULIN R [Concomitant]
     Active Substance: INSULIN HUMAN
     Dosage: 0.06 ML, WITH BREAKFAST
     Route: 058
     Dates: start: 20150117, end: 20150228
  47. LISINOPRIL. [Concomitant]
     Active Substance: LISINOPRIL
     Dosage: 20 MG, 1X/DAY
     Route: 048
     Dates: start: 20150116, end: 20150227
  48. OXYCODONE [Concomitant]
     Active Substance: OXYCODONE
     Indication: PAIN
     Dosage: 15MG TABLET AT 1-2 TABS EVERY 4-6 HOURS PRN
     Route: 048
     Dates: start: 20140812
  49. POTASSIUM CHLORIDE. [Concomitant]
     Active Substance: POTASSIUM CHLORIDE
     Dosage: 20 MEQ, 1X/DAY
     Route: 048
     Dates: start: 20150116, end: 20150227
  50. FARXIGA [Concomitant]
     Active Substance: DAPAGLIFLOZIN PROPANEDIOL
     Dosage: 10 MG, 1X/DAY
     Route: 048
     Dates: start: 20140812
  51. LOMOTIL [Concomitant]
     Active Substance: ATROPINE SULFATE\DIPHENOXYLATE HYDROCHLORIDE
     Dosage: 1 DF, DAILY (ATROPINE SULFATE 2.5 MG-DIPHENOXYLATE HYDROCHLORIDE-0.025 MG)
     Route: 048
     Dates: start: 20150324
  52. INSULIN HUMAN [Concomitant]
     Active Substance: INSULIN HUMAN
     Dosage: 500 UNIT/ML SUBCUTANEOUS SOLUTION AT 14U Q AM, 35U Q AFTERNOON, 8U EVENING
     Route: 058
     Dates: start: 20140812
  53. PRENATAL MULTIVITAMINS WITH FOLIC ACID [Concomitant]
     Dosage: 0.8 MG, 1X/DAY
     Dates: start: 20140812
  54. HUMULIN R [Concomitant]
     Active Substance: INSULIN HUMAN
     Dosage: 0.31 ML, WITH LUNCH
     Route: 058
     Dates: start: 20150117, end: 20150228
  55. HUMULIN R [Concomitant]
     Active Substance: INSULIN HUMAN
     Dosage: 0.12 ML, WITH SUPPER
     Route: 058
     Dates: start: 20150116, end: 20150227
  56. NORCO [Concomitant]
     Active Substance: ACETAMINOPHEN\HYDROCODONE BITARTRATE
     Indication: PAIN
     Dosage: 1 TAB (5 MG-325 MG), Q12H, PRN
     Route: 048
     Dates: start: 20150115, end: 20150129
  57. FUROSEMIDE. [Concomitant]
     Active Substance: FUROSEMIDE
     Dosage: 40 MG, 2X/DAY
     Route: 048
     Dates: start: 20140812
  58. PLAVIX [Concomitant]
     Active Substance: CLOPIDOGREL BISULFATE
     Dosage: 75 MG, 1X/DAY
     Route: 048
  59. KEFLEX [Concomitant]
     Active Substance: CEPHALEXIN
     Dosage: 500 MG, 2X/DAY (ONE BID X7 DAYS)
     Route: 048
  60. NYSTATIN. [Concomitant]
     Active Substance: NYSTATIN
     Dosage: 100000 UNIT/GM, AS NEEDED
     Route: 061
     Dates: start: 20150314
  61. COMBIVENT RESPIMAT [Concomitant]
     Active Substance: ALBUTEROL SULFATE\IPRATROPIUM BROMIDE
     Dosage: 2 DF, AS NEEDED (CFC FREE 100 MCG-20MCG/INH INHALATION AEROSOL  AT  2 PUFFS EVERY 4-6 HOURS)
     Dates: start: 20140812

REACTIONS (4)
  - Cerebrovascular accident [Unknown]
  - Hypertension [Unknown]
  - Hyperglycaemia [Not Recovered/Not Resolved]
  - Sleep apnoea syndrome [Not Recovered/Not Resolved]

NARRATIVE: CASE EVENT DATE: 20150115
